FAERS Safety Report 8529602-8 (Version None)
Quarter: 2012Q2

REPORT INFORMATION
  Report Type: 
  Country: None (occurrence: None)
  Receive Date: 20120409
  Receipt Date: 20110309
  Transmission Date: 20120825
  Serious: Yes (Death)
  Sender: FDA-Public Use
  Company Number: 2011-092

PATIENT
  Age: 40 Year
  Sex: Female

DRUGS (1)
  1. FAZACLO ODT [Suspect]
     Dosage: 600 MG, QD, ORAL
     Route: 048
     Dates: start: 20071017, end: 20110115

REACTIONS (1)
  - ACUTE MYOCARDIAL INFARCTION [None]
